FAERS Safety Report 13940409 (Version 2)
Quarter: 2017Q3

REPORT INFORMATION
  Report Type: Report from Study
  Country: US (occurrence: US)
  Receive Date: 20170906
  Receipt Date: 20170919
  Transmission Date: 20171127
  Serious: Yes (Other)
  Sender: FDA-Public Use
  Company Number: US-AMGEN-USASL2017132331

PATIENT
  Age: 63 Year
  Sex: Female

DRUGS (31)
  1. COZAAR [Concomitant]
     Active Substance: LOSARTAN POTASSIUM
     Dosage: 25 MG, UNK
  2. ELAVIL [Concomitant]
     Active Substance: AMITRIPTYLINE HYDROCHLORIDE
     Dosage: 50 MG, UNK
  3. CELESTONE [Concomitant]
     Active Substance: BETAMETHASONE
     Dosage: 2 DF ( 6 MG), UNK
     Dates: start: 20140306
  4. PROLIA [Suspect]
     Active Substance: DENOSUMAB
     Indication: STEROID THERAPY
  5. ANTIVERT [Concomitant]
     Active Substance: MECLIZINE HYDROCHLORIDE
     Dosage: 25 MG, UNK
  6. LIPITOR [Concomitant]
     Active Substance: ATORVASTATIN CALCIUM
     Dosage: 80 MG, UNK
  7. NORVASC [Concomitant]
     Active Substance: AMLODIPINE BESYLATE
     Dosage: 5 MG, UNK
  8. FOLATE [Concomitant]
     Active Substance: FOLATE SODIUM
     Dosage: 400 MUG, UNK
  9. ASA [Concomitant]
     Active Substance: ASPIRIN
     Dosage: 81 MG, UNK
  10. METHOTREXATE. [Concomitant]
     Active Substance: METHOTREXATE
     Dosage: 2.5 MG, UNK
  11. DEPO-MEDROL [Concomitant]
     Active Substance: METHYLPREDNISOLONE ACETATE
     Dosage: 80 MG, UNK
     Route: 065
     Dates: start: 20161003
  12. PROLIA [Suspect]
     Active Substance: DENOSUMAB
     Indication: URETERAL DISORDER
  13. DEPO-MEDROL [Concomitant]
     Active Substance: METHYLPREDNISOLONE ACETATE
     Dosage: 160 MG, UNK
     Route: 065
     Dates: start: 20160728
  14. DEPO-MEDROL [Concomitant]
     Active Substance: METHYLPREDNISOLONE ACETATE
     Dosage: 160 MG, UNK
     Route: 065
     Dates: start: 20170118
  15. PNEUMOCOCCAL VACCINE POLYVALENT NOS [Concomitant]
     Active Substance: PNEUMOCOCCAL VACCINE POLYVALENT
     Dosage: 23 UNK, UNK
     Dates: start: 20081016
  16. PROLIA [Suspect]
     Active Substance: DENOSUMAB
     Indication: BONE DISORDER
     Dosage: 60 MG, Q6MO
     Route: 058
  17. PLETAL [Concomitant]
     Active Substance: CILOSTAZOL
     Dosage: 50 MG, UNK
  18. PRILOSEC [Concomitant]
     Active Substance: OMEPRAZOLE MAGNESIUM
     Dosage: 40 MG, UNK
  19. NEURONTIN [Concomitant]
     Active Substance: GABAPENTIN
     Dosage: 300 MG, UNK
  20. DEPO-MEDROL [Concomitant]
     Active Substance: METHYLPREDNISOLONE ACETATE
     Dosage: 160 MG, UNK
     Route: 065
     Dates: start: 20170124
  21. INFLUENZA VACCINE [Concomitant]
     Active Substance: INFLUENZA VIRUS VACCINE
     Dosage: UNK
  22. BASAGLAR [Concomitant]
     Active Substance: INSULIN GLARGINE
     Dosage: 100 UNIT/ML, UNK
  23. ZOLOFT [Concomitant]
     Active Substance: SERTRALINE HYDROCHLORIDE
     Dosage: 100 MG, UNK
  24. DEPO-MEDROL [Concomitant]
     Active Substance: METHYLPREDNISOLONE ACETATE
     Dosage: 80 MG, UNK
     Route: 065
     Dates: start: 20170714
  25. PROLIA [Suspect]
     Active Substance: DENOSUMAB
     Indication: RENAL DISORDER
  26. PERCOCET [Concomitant]
     Active Substance: ACETAMINOPHEN\OXYCODONE HYDROCHLORIDE
     Dosage: 5 TO 325 MG, UNK
  27. ENBREL [Suspect]
     Active Substance: ETANERCEPT
     Indication: PRODUCT USED FOR UNKNOWN INDICATION
     Dosage: 50 MG/ML, UNK
     Route: 058
  28. PLAVIX [Concomitant]
     Active Substance: CLOPIDOGREL BISULFATE
     Dosage: 75 MG, UNK
  29. NOVOLOG [Concomitant]
     Active Substance: INSULIN ASPART
     Dosage: 100 UNIT/ML, UNK
     Route: 058
  30. KENALOG [Concomitant]
     Active Substance: TRIAMCINOLONE ACETONIDE
     Dosage: 80 MG, UNK
     Dates: start: 20141119
  31. MARCAINE [Concomitant]
     Active Substance: BUPIVACAINE HYDROCHLORIDE
     Dosage: 2 DF (2.5 MG/ML/0.25%), UNK
     Dates: start: 20140306

REACTIONS (17)
  - Chronic kidney disease [Unknown]
  - Constipation [Unknown]
  - Type 1 diabetes mellitus [Unknown]
  - Gastrooesophageal reflux disease [Unknown]
  - Carotid artery disease [Unknown]
  - Staphylococcal infection [Unknown]
  - Rheumatoid arthritis [Unknown]
  - Tinea pedis [Unknown]
  - Generalised anxiety disorder [Unknown]
  - Depression [Not Recovered/Not Resolved]
  - Acute kidney injury [Unknown]
  - Oral herpes [Unknown]
  - Pneumonia [Unknown]
  - Anaemia [Unknown]
  - Hypercholesterolaemia [Unknown]
  - Diabetic neuropathy [Unknown]
  - Off label use [Unknown]

NARRATIVE: CASE EVENT DATE: 201404
